FAERS Safety Report 6344398-6 (Version None)
Quarter: 2009Q3

REPORT INFORMATION
  Report Type: 
  Country: None (occurrence: None)
  Receive Date: 20090908
  Receipt Date: 20090827
  Transmission Date: 20100115
  Serious: Yes (Hospitalization)
  Sender: FDA-Public Use
  Company Number: PHHO2009ZA10629

PATIENT
  Sex: Male
  Weight: 56.6 kg

DRUGS (2)
  1. STARLIX DJN+TAB [Suspect]
     Indication: GLUCOSE TOLERANCE IMPAIRED
     Dosage: 60 MG, UNK
  2. VALSARTAN [Suspect]
     Indication: CARDIOVASCULAR DISORDER

REACTIONS (8)
  - ABDOMINAL PAIN UPPER [None]
  - ATRIAL FIBRILLATION [None]
  - CHOLECYSTITIS [None]
  - CHOLELITHIASIS [None]
  - CHOLELITHOTOMY [None]
  - ENDOSCOPIC RETROGRADE CHOLANGIOPANCREATOGRAPHY [None]
  - ISCHAEMIA [None]
  - LIVER FUNCTION TEST ABNORMAL [None]
